FAERS Safety Report 24850962 (Version 1)
Quarter: 2025Q1

REPORT INFORMATION
  Report Type: Spontaneous
  Country: US (occurrence: US)
  Receive Date: 20250116
  Receipt Date: 20250116
  Transmission Date: 20250408
  Serious: No
  Sender: SK LIFE SCIENCE
  Company Number: US-SK LIFE SCIENCE, INC-SKPVG-2024-000571

PATIENT

DRUGS (4)
  1. XCOPRI [Suspect]
     Active Substance: CENOBAMATE
     Indication: Epilepsy
     Route: 065
     Dates: start: 202305
  2. XCOPRI [Suspect]
     Active Substance: CENOBAMATE
     Indication: Seizure
     Route: 065
  3. XCOPRI [Suspect]
     Active Substance: CENOBAMATE
     Route: 065
     Dates: start: 20240312
  4. XCOPRI [Suspect]
     Active Substance: CENOBAMATE
     Route: 065
     Dates: start: 20240323

REACTIONS (7)
  - Seizure [Unknown]
  - Product dose omission issue [Recovered/Resolved]
  - Drug titration error [Recovered/Resolved]
  - Product prescribing error [Recovered/Resolved]
  - Seizure [Recovering/Resolving]
  - Product use issue [Not Recovered/Not Resolved]
  - Seizure [Recovering/Resolving]

NARRATIVE: CASE EVENT DATE: 20240223
